FAERS Safety Report 8795118 (Version 1)
Quarter: 2012Q4

REPORT INFORMATION
  Report Type: 
  Country: US (occurrence: US)
  Receive Date: 20120917
  Receipt Date: 20120917
  Transmission Date: 20130627
  Serious: Yes (Other)
  Sender: FDA-Public Use
  Company Number: US-009507513-1209USA003440

PATIENT

DRUGS (5)
  1. ISENTRESS [Suspect]
     Dosage: UNK
     Route: 048
  2. PREZISTA [Suspect]
     Route: 048
  3. VIREAD [Suspect]
     Route: 048
  4. TRIZIVIR [Suspect]
     Route: 048
  5. NORVIR [Suspect]
     Route: 048

REACTIONS (2)
  - Polyhydramnios [Unknown]
  - Maternal exposure during pregnancy [Unknown]
